FAERS Safety Report 15265463 (Version 10)
Quarter: 2019Q2

REPORT INFORMATION
  Report Type: Spontaneous
  Country: PL (occurrence: PL)
  Receive Date: 20180810
  Receipt Date: 20190621
  Transmission Date: 20190711
  Serious: Yes (Life-Threatening, Hospitalization, Other)
  Sender: FDA-Public Use
  Company Number: PHHY2018PL066100

PATIENT
  Age: 81 Year
  Sex: Female
  Weight: 74 kg

DRUGS (13)
  1. KALIPOZ [Concomitant]
     Active Substance: POTASSIUM CHLORIDE
     Indication: PRODUCT USED FOR UNKNOWN INDICATION
     Dosage: 1 DF, UNK (IN THE MORNING)
     Route: 065
  2. GENSULIN N [Concomitant]
     Indication: PRODUCT USED FOR UNKNOWN INDICATION
     Dosage: 1 OT, QD (18 TO 20 U)
     Route: 065
  3. CAVINTON [Concomitant]
     Active Substance: VINPOCETINE
     Indication: PRODUCT USED FOR UNKNOWN INDICATION
     Dosage: UNK
     Route: 065
  4. WARFARIN [Concomitant]
     Active Substance: WARFARIN
     Dosage: UNK
     Route: 065
     Dates: start: 20160225
  5. AXUDAN [Suspect]
     Active Substance: VALSARTAN
     Indication: HYPERTENSION
     Dosage: 160 MG, QD ((MORNING 6 AM))
     Route: 048
     Dates: start: 201410, end: 20180803
  6. LIPANTHYL SUPRA [Concomitant]
     Active Substance: FENOFIBRATE
     Indication: PRODUCT USED FOR UNKNOWN INDICATION
     Dosage: 1 DF, UNK (IN THE EVENING)
     Route: 065
     Dates: end: 20180803
  7. VARFINE [Concomitant]
     Active Substance: WARFARIN SODIUM
     Indication: PRODUCT USED FOR UNKNOWN INDICATION
     Dosage: 1 DF, UNK (AT LUNCH TIME)
     Route: 065
  8. BI-PROFENID [Concomitant]
     Active Substance: KETOPROFEN
     Indication: SPINAL PAIN
     Dosage: 2 DF, QW (POSSIBLY)
     Route: 065
  9. PRIMACOR [Concomitant]
     Active Substance: MILRINONE LACTATE
     Indication: PRODUCT USED FOR UNKNOWN INDICATION
     Dosage: 1 DF, UNK (IN THE EVENING)
     Route: 065
  10. BISOCARD [Concomitant]
     Active Substance: BISOPROLOL
     Indication: PRODUCT USED FOR UNKNOWN INDICATION
     Dosage: 0.5 DF, UNK (IN THE MORNING)
     Route: 065
  11. GENSULIN R [Concomitant]
     Active Substance: INSULIN HUMAN
     Indication: PRODUCT USED FOR UNKNOWN INDICATION
     Dosage: 3 OT, QD (8 TO 10 U)
     Route: 065
  12. ASPARGIN [Concomitant]
     Active Substance: ASPARTIC ACID
     Indication: PRODUCT USED FOR UNKNOWN INDICATION
     Dosage: 1 DF, UNK (IN THE MORNING)
     Route: 065
  13. WARFARIN [Concomitant]
     Active Substance: WARFARIN
     Indication: DEEP VEIN THROMBOSIS
     Dosage: UNK
     Route: 065
     Dates: start: 201403, end: 20160114

REACTIONS (24)
  - Feeling abnormal [Unknown]
  - Neutrophil percentage increased [Unknown]
  - Seizure [Recovered/Resolved]
  - Amnesia [Unknown]
  - Troponin T increased [Unknown]
  - Blood urea increased [Unknown]
  - Syncope [Recovered/Resolved]
  - Prothrombin time prolonged [Unknown]
  - Blood glucose increased [Unknown]
  - Seizure [Recovered/Resolved]
  - Seizure [Recovered/Resolved]
  - International normalised ratio increased [Unknown]
  - Blood creatinine increased [Unknown]
  - Loss of consciousness [Recovered/Resolved]
  - Thrombosis [Unknown]
  - Loss of consciousness [Unknown]
  - Dyspnoea [Unknown]
  - Asthenia [Unknown]
  - Pulmonary embolism [Unknown]
  - Dehydration [Unknown]
  - Gait inability [Unknown]
  - Heart rate decreased [Unknown]
  - Lymphocyte percentage decreased [Unknown]
  - Syncope [Recovered/Resolved]

NARRATIVE: CASE EVENT DATE: 20180430
